FAERS Safety Report 18000239 (Version 1)
Quarter: 2020Q3

REPORT INFORMATION
  Report Type: Spontaneous
  Country: US (occurrence: US)
  Receive Date: 20200709
  Receipt Date: 20200709
  Transmission Date: 20201103
  Serious: No
  Sender: FDA-Public Use
  Company Number: US-MYLANLABS-2020M1059183

PATIENT
  Sex: Female
  Weight: 45 kg

DRUGS (1)
  1. HYDROXYCHLOROQUINE SULFATE TABLETS, USP [Suspect]
     Active Substance: HYDROXYCHLOROQUINE SULFATE
     Indication: GRANULOMA ANNULARE
     Dosage: TAKING THE PRODUCT FOR THREE DAYS, DAILY
     Route: 048
     Dates: start: 20200613

REACTIONS (3)
  - Wrong technique in product usage process [Not Recovered/Not Resolved]
  - Product use complaint [Unknown]
  - Off label use [Not Recovered/Not Resolved]
